FAERS Safety Report 5413435-5 (Version None)
Quarter: 2007Q3

REPORT INFORMATION
  Report Type: 
  Country: None (occurrence: None)
  Receive Date: 20070810
  Receipt Date: 20070810
  Transmission Date: 20080115
  Serious: Yes (Hospitalization)
  Sender: FDA-Public Use
  Company Number: None

PATIENT
  Age: 14 Year
  Sex: Female

DRUGS (2)
  1. BACTRIM [Suspect]
     Indication: URINARY TRACT INFECTION
     Dates: start: 20060718, end: 20060720
  2. TYLENOL [Concomitant]

REACTIONS (2)
  - NEUTROPENIA [None]
  - RASH [None]
